FAERS Safety Report 4336828-6 (Version None)
Quarter: 2004Q2

REPORT INFORMATION
  Report Type: 
  Country: None (occurrence: None)
  Receive Date: 20040407
  Receipt Date: 20040324
  Transmission Date: 20050107
  Serious: Yes (Hospitalization)
  Sender: FDA-Public Use
  Company Number: 2004205472US

PATIENT
  Age: 63 Year
  Sex: Female

DRUGS (4)
  1. EXEMESTANE (EXEMESTANE) [Suspect]
     Indication: BREAST CANCER
     Dosage: QD
     Dates: start: 20030510
  2. ATENOLOL [Concomitant]
  3. SYNTHROID [Concomitant]
  4. ROFECOXIB [Concomitant]

REACTIONS (4)
  - ATRIAL FIBRILLATION [None]
  - ATRIAL THROMBOSIS [None]
  - CARDIAC FAILURE CONGESTIVE [None]
  - PNEUMONIA [None]
